FAERS Safety Report 7147807-8 (Version None)
Quarter: 2010Q4

REPORT INFORMATION
  Report Type: 
  Country: None (occurrence: None)
  Receive Date: 20101207
  Receipt Date: 20101207
  Transmission Date: 20110411
  Serious: No
  Sender: FDA-Public Use
  Company Number: None

PATIENT
  Age: 54 Year
  Sex: Male
  Weight: 78.7 kg

DRUGS (1)
  1. ANTIHEMOPHILIC FACTOR (HUMAN) [Suspect]
     Indication: VON WILLEBRAND'S DISEASE
     Dosage: 2000 UNITS ONCE IV
     Route: 042
     Dates: start: 20101102, end: 20101102

REACTIONS (1)
  - RASH [None]
